FAERS Safety Report 8196388-9 (Version None)
Quarter: 2012Q1

REPORT INFORMATION
  Report Type: 
  Country: None (occurrence: None)
  Receive Date: 20120307
  Receipt Date: 20120307
  Transmission Date: 20120608
  Serious: Yes (Life-Threatening)
  Sender: FDA-Public Use
  Company Number: None

PATIENT
  Age: 32 Year
  Sex: Male
  Weight: 86.1 kg

DRUGS (2)
  1. METHIMAZOLE [Suspect]
     Indication: HYPERTHYROIDISM
     Dosage: 20 MG TID PO
     Route: 048
     Dates: start: 20110211, end: 20110303
  2. PROPRANOLOL [Suspect]
     Indication: HYPERTHYROIDISM
     Dosage: 20 MG TID PO
     Route: 048
     Dates: start: 20110224, end: 20110303

REACTIONS (4)
  - URTICARIA [None]
  - RASH [None]
  - ANAPHYLACTIC REACTION [None]
  - OBSTRUCTIVE AIRWAYS DISORDER [None]
